FAERS Safety Report 15394896 (Version 1)
Quarter: 2018Q3

REPORT INFORMATION
  Report Type: Report from Study
  Country: DE (occurrence: DE)
  Receive Date: 20180918
  Receipt Date: 20180918
  Transmission Date: 20181010
  Serious: Yes (Hospitalization)
  Sender: FDA-Public Use
  Company Number: DE-ROCHE-2181313

PATIENT
  Age: 74 Year
  Sex: Female
  Weight: 70 kg

DRUGS (10)
  1. CYCLOPHOSPHAMIDE. [Suspect]
     Active Substance: CYCLOPHOSPHAMIDE
     Indication: BREAST CANCER
     Dosage: DATE OF LAST DOSE PRIOR TO SAE WAS 25/JUL/2018.
     Route: 042
     Dates: start: 20180725
  2. SIMVASTATIN. [Concomitant]
     Active Substance: SIMVASTATIN
     Route: 065
  3. TRASTUZUMAB. [Suspect]
     Active Substance: TRASTUZUMAB
     Indication: BREAST CANCER
     Dosage: SECOND DOSE WAS 427.08 MG, THIRD DOSE WAS 424.43 MG. FOURTH DOSE WAS 416.05 MG.?DATE OF LAST DOSE PR
     Route: 042
     Dates: start: 20180327
  4. EPIRUBICIN [Suspect]
     Active Substance: EPIRUBICIN
     Indication: BREAST CANCER
     Dosage: DATE OF LAST DOSE PRIOR TO SAE WAS 25/JUL/2018.
     Route: 042
     Dates: start: 20180725
  5. PERTUZUMAB. [Suspect]
     Active Substance: PERTUZUMAB
     Route: 042
  6. PERTUZUMAB. [Suspect]
     Active Substance: PERTUZUMAB
     Dosage: DATE OF LAST DOSE PRIOR TO SAE WAS 23/MAY/2018
     Route: 042
     Dates: start: 20180327
  7. LETROZOLE. [Suspect]
     Active Substance: LETROZOLE
     Indication: BREAST CANCER
     Dosage: DATE OF LAST DOSE PRIOR TO SAE WAS 20/JUL/2018.
     Route: 048
     Dates: start: 20180327
  8. FELODIPINE. [Concomitant]
     Active Substance: FELODIPINE
     Route: 065
  9. PERTUZUMAB. [Suspect]
     Active Substance: PERTUZUMAB
     Indication: BREAST CANCER
     Dosage: DATE OF LAST DOSE PRIOR TO SAE WAS 23/MAY/2018
     Route: 042
     Dates: start: 20180327
  10. PERTUZUMAB. [Suspect]
     Active Substance: PERTUZUMAB
     Route: 042

REACTIONS (3)
  - Pyrexia [Recovering/Resolving]
  - Periodontitis [Recovered/Resolved]
  - Pancytopenia [Recovering/Resolving]

NARRATIVE: CASE EVENT DATE: 20180807
